FAERS Safety Report 4476773-9 (Version None)
Quarter: 2004Q4

REPORT INFORMATION
  Report Type: 
  Country: None (occurrence: None)
  Receive Date: 20041015
  Receipt Date: 20041015
  Transmission Date: 20050328
  Serious: Yes (Life-Threatening)
  Sender: FDA-Public Use
  Company Number: None

PATIENT
  Age: 81 Year
  Sex: Female
  Weight: 55.8 kg

DRUGS (11)
  1. METHOTREXATE [Suspect]
     Dosage: 25 MG   5 DAYS PER WK   ORAL
     Route: 048
     Dates: start: 20040325, end: 20040622
  2. PROCARDIA XL [Concomitant]
  3. REMERON [Concomitant]
  4. IRON [Concomitant]
  5. GLIPIZIDE [Concomitant]
  6. HYDROCHLOROTHIAZIDE [Concomitant]
  7. PLAVIX [Concomitant]
  8. ASPIRIN [Concomitant]
  9. SENNA [Concomitant]
  10. VITAMIN C [Concomitant]
  11. MULTIVAIT W/ MINERAL [Concomitant]

REACTIONS (6)
  - ASTHENIA [None]
  - LETHARGY [None]
  - MEDICATION ERROR [None]
  - MUCOSAL INFLAMMATION [None]
  - MYELODYSPLASTIC SYNDROME [None]
  - PANCYTOPENIA [None]
